FAERS Safety Report 18727517 (Version 1)
Quarter: 2021Q1

REPORT INFORMATION
  Report Type: Spontaneous
  Country: JP (occurrence: JP)
  Receive Date: 20210112
  Receipt Date: 20210112
  Transmission Date: 20210419
  Serious: Yes (Other)
  Sender: FDA-Public Use
  Company Number: JP-TAKEDA-2021TJP000255

PATIENT
  Age: 8 Decade

DRUGS (2)
  1. HYDREA [Concomitant]
     Active Substance: HYDROXYUREA
     Indication: ESSENTIAL THROMBOCYTHAEMIA
     Route: 065
  2. AGRYLIN [Suspect]
     Active Substance: ANAGRELIDE HYDROCHLORIDE
     Indication: ESSENTIAL THROMBOCYTHAEMIA
     Dosage: UNK
     Route: 048
     Dates: end: 202012

REACTIONS (1)
  - Myelofibrosis [Not Recovered/Not Resolved]

NARRATIVE: CASE EVENT DATE: 202012
